FAERS Safety Report 7456551-9 (Version None)
Quarter: 2011Q2

REPORT INFORMATION
  Report Type: 
  Country: None (occurrence: None)
  Receive Date: 20110503
  Receipt Date: 20110429
  Transmission Date: 20111010
  Serious: Yes (Other)
  Sender: FDA-Public Use
  Company Number: FR-ABBOTT-11P-056-0722784-00

PATIENT
  Age: 21 Month
  Sex: Female

DRUGS (1)
  1. MICROPAKINE LP [Suspect]
     Indication: EPILEPSY
     Dosage: TWICE A DAY, PROLONGED-RELEASE GRANULES
     Route: 048
     Dates: start: 20110124, end: 20110206

REACTIONS (2)
  - RASH PAPULAR [None]
  - PURPURA [None]
